FAERS Safety Report 7417658-5 (Version None)
Quarter: 2011Q2

REPORT INFORMATION
  Report Type: 
  Country: None (occurrence: None)
  Receive Date: 20110415
  Receipt Date: 20110406
  Transmission Date: 20111010
  Serious: Yes (Death, Hospitalization, Other)
  Sender: FDA-Public Use
  Company Number: US-ALEXION-A201100487

PATIENT

DRUGS (3)
  1. SOLIRIS [Suspect]
     Indication: PAROXYSMAL NOCTURNAL HAEMOGLOBINURIA
     Dosage: 600 MG, QW
     Route: 042
     Dates: start: 20110105, end: 20110126
  2. SOLIRIS [Suspect]
     Dosage: 900 MG, Q2W
     Route: 042
     Dates: start: 20110209, end: 20110309
  3. KEPPRA [Concomitant]
     Dosage: UNK
     Dates: end: 20110406

REACTIONS (6)
  - HAEMORRHAGE INTRACRANIAL [None]
  - DIZZINESS [None]
  - FALL [None]
  - PLATELET COUNT DECREASED [None]
  - SCIATICA [None]
  - VOMITING [None]
